FAERS Safety Report 9702864 (Version 1)
Quarter: 2013Q4

REPORT INFORMATION
  Report Type: Spontaneous
  Country: US (occurrence: US)
  Receive Date: 20131121
  Receipt Date: 20131121
  Transmission Date: 20140711
  Serious: Yes (Hospitalization, Other)
  Sender: FDA-Public Use
  Company Number: US-RB-060851-13

PATIENT
  Sex: Male

DRUGS (2)
  1. SUBOXONE [Suspect]
     Indication: DRUG DEPENDENCE
     Dosage: DOSING DETAILS UNKNOWN
     Route: 065
     Dates: start: 2011
  2. SUBOXONE [Suspect]
     Dosage: DOSING DETAILS UNKNOWN - SUBOXONE RESTARTED.
     Route: 065
     Dates: end: 2013

REACTIONS (12)
  - Drug detoxification [Recovered/Resolved]
  - Intentional underdose [Recovered/Resolved]
  - Feeling abnormal [Unknown]
  - Cardiac disorder [Unknown]
  - Liver injury [Unknown]
  - Chest pain [Unknown]
  - Depression [Unknown]
  - Tremor [Unknown]
  - Hyperhidrosis [Unknown]
  - Paraesthesia [Unknown]
  - General symptom [Unknown]
  - Mental disorder [Unknown]
